FAERS Safety Report 6656102-2 (Version None)
Quarter: 2010Q1

REPORT INFORMATION
  Report Type: 
  Country: None (occurrence: None)
  Receive Date: 20100329
  Receipt Date: 20100316
  Transmission Date: 20100710
  Serious: Yes (Hospitalization)
  Sender: FDA-Public Use
  Company Number: B0640204A

PATIENT
  Age: 41 Year
  Sex: Male

DRUGS (16)
  1. LAMIVUDINE [Suspect]
     Indication: HIV INFECTION
     Dates: start: 19970207, end: 20080108
  2. LAMIVUDINE [Suspect]
     Dates: start: 20080215
  3. RITONAVIR [Suspect]
     Indication: DRUG USE FOR UNKNOWN INDICATION
     Dates: start: 19970204, end: 20080104
  4. RALTEGRAVIR POTASSIUM [Suspect]
     Indication: HIV INFECTION
     Route: 048
     Dates: start: 20071216, end: 20080108
  5. RALTEGRAVIR POTASSIUM [Suspect]
     Route: 048
     Dates: start: 20080215
  6. DARUNAVIR [Suspect]
     Indication: HIV INFECTION
     Dosage: 1200MG PER DAY
     Dates: start: 20071215, end: 20080104
  7. MARAVIROC [Suspect]
     Indication: HIV INFECTION
     Dosage: 300MG PER DAY
     Dates: start: 20071215, end: 20080108
  8. MARAVIROC [Suspect]
     Dosage: 400MG PER DAY
     Dates: start: 20080215
  9. CYCLOPHOSPHAMIDE [Suspect]
     Indication: HIV INFECTION
     Dates: start: 20071216, end: 20080104
  10. ASPIRIN [Concomitant]
     Indication: DRUG USE FOR UNKNOWN INDICATION
  11. ATORVASTATIN CALCIUM [Concomitant]
     Indication: DRUG USE FOR UNKNOWN INDICATION
  12. OMEGA-3-ACID ETHYL ESTERS [Concomitant]
     Indication: DRUG USE FOR UNKNOWN INDICATION
  13. SEPTRIN [Concomitant]
     Indication: DRUG USE FOR UNKNOWN INDICATION
     Dates: start: 19960101
  14. SEPTRIN [Concomitant]
     Dates: end: 20080104
  15. TIPRANAVIR [Concomitant]
     Indication: DRUG USE FOR UNKNOWN INDICATION
     Dates: start: 20080215
  16. VITAMIN TAB [Concomitant]
     Indication: DRUG USE FOR UNKNOWN INDICATION

REACTIONS (5)
  - ABDOMINAL DISTENSION [None]
  - NAUSEA [None]
  - STEVENS-JOHNSON SYNDROME [None]
  - VIRAL LOAD INCREASED [None]
  - WEIGHT DECREASED [None]
